FAERS Safety Report 16882541 (Version 3)
Quarter: 2019Q4

REPORT INFORMATION
  Report Type: Spontaneous
  Country: JP (occurrence: JP)
  Receive Date: 20191003
  Receipt Date: 20191120
  Transmission Date: 20200122
  Serious: Yes (Death, Other)
  Sender: FDA-Public Use
  Company Number: JP-GILEAD-2019-0431342

PATIENT
  Age: 86 Year
  Sex: Male
  Weight: 48.3 kg

DRUGS (14)
  1. AMINOLEBAN EN [Concomitant]
     Active Substance: UNSPECIFIED INGREDIENT
     Indication: HEPATIC CIRRHOSIS
  2. EPCLUSA [Suspect]
     Active Substance: SOFOSBUVIR\VELPATASVIR
     Indication: HEPATITIS C
     Dosage: 1 DOSAGE FORM, QD (AFTER BREAKFAST)
     Route: 048
     Dates: start: 20190717, end: 20190814
  3. PIARLE [Concomitant]
     Active Substance: LACTULOSE
     Indication: HEPATITIS C
     Dosage: 40 ML, BID (AFTER BREAKFAST AND DINNER)
     Route: 048
     Dates: start: 20190529, end: 20190812
  4. PIARLE [Concomitant]
     Active Substance: LACTULOSE
     Indication: HEPATIC CIRRHOSIS
  5. VITAMEDIN [BENFOTIAMINE;CYANOCOBALAMIN;PYRIDOXINE HYDROCHLORIDE] [Concomitant]
     Indication: HEPATITIS C
     Dosage: 1 DOSAGE FORM, QD (AFTER BREAKFAST)
     Route: 048
     Dates: start: 20190705, end: 20190720
  6. SAMSCA [Concomitant]
     Active Substance: TOLVAPTAN
     Dosage: 0.5 DOSAGE FORM, QD (AFTER BREAKFAST)
     Dates: start: 20190722
  7. BUTYRIC ACID [Concomitant]
     Active Substance: BUTYRIC ACID
     Indication: HEPATIC CIRRHOSIS
  8. BELSOMRA [Concomitant]
     Active Substance: SUVOREXANT
     Dosage: 1 DOSAGE FORM, QHS
  9. ADSORBIN [Concomitant]
     Active Substance: ALUMINUM SILICATE
     Dosage: 2 G, BID (AFTER BREAKFAST AND DINNER)
     Dates: start: 20190724
  10. AMINOLEBAN EN [Concomitant]
     Active Substance: UNSPECIFIED INGREDIENT
     Indication: HEPATITIS C
     Dosage: 1 DOSAGE FORM, QHS
     Route: 048
     Dates: start: 20190522, end: 20190814
  11. VITAMEDIN [BENFOTIAMINE;CYANOCOBALAMIN;PYRIDOXINE HYDROCHLORIDE] [Concomitant]
     Indication: HEPATIC CIRRHOSIS
  12. EPCLUSA [Suspect]
     Active Substance: SOFOSBUVIR\VELPATASVIR
     Indication: HEPATIC CIRRHOSIS
  13. BUTYRIC ACID [Concomitant]
     Active Substance: BUTYRIC ACID
     Indication: HEPATITIS C
     Dosage: 2 G, BID (AFTER BREAKFAST AND DINNER)
     Route: 048
     Dates: start: 20190524, end: 20190814
  14. FUROSEMIDE. [Concomitant]
     Active Substance: FUROSEMIDE
     Dosage: 1 DOSAGE FORM, QD (AFTER BREAKFAST)
     Dates: start: 20190722

REACTIONS (1)
  - Pleural effusion [Fatal]
